FAERS Safety Report 8315169-6 (Version None)
Quarter: 2012Q2

REPORT INFORMATION
  Report Type: 
  Country: None (occurrence: None)
  Receive Date: 20120426
  Receipt Date: 20120419
  Transmission Date: 20120825
  Serious: Yes (Hospitalization)
  Sender: FDA-Public Use
  Company Number: US-GLAXOSMITHKLINE-B0717304A

PATIENT
  Age: 73 Year
  Sex: Male

DRUGS (1)
  1. AVANDIA [Suspect]
     Indication: DIABETES MELLITUS
     Dosage: 8MG PER DAY
     Route: 048
     Dates: start: 20000101, end: 20030801

REACTIONS (12)
  - PERIPHERAL VASCULAR DISORDER [None]
  - ATRIAL FIBRILLATION [None]
  - MYOCARDIAL ISCHAEMIA [None]
  - CORONARY ARTERY DISEASE [None]
  - MITRAL VALVE INCOMPETENCE [None]
  - AORTIC STENOSIS [None]
  - STENT PLACEMENT [None]
  - HYPERLIPIDAEMIA [None]
  - CARDIOMEGALY [None]
  - AORTIC VALVE REPLACEMENT [None]
  - CARDIAC FAILURE CONGESTIVE [None]
  - ARTERIOSCLEROSIS [None]
